FAERS Safety Report 7953698-5 (Version None)
Quarter: 2011Q4

REPORT INFORMATION
  Report Type: 
  Country: None (occurrence: None)
  Receive Date: 20111202
  Receipt Date: 20110616
  Transmission Date: 20120403
  Serious: No
  Sender: FDA-Public Use
  Company Number: US-BAYER-2011-039672

PATIENT
  Age: 28 Year
  Sex: Female

DRUGS (8)
  1. IBUPROFEN [Concomitant]
     Indication: PREMEDICATION
  2. ANTIBIOTICS [Concomitant]
     Indication: PROPHYLAXIS
  3. BENADRYL [Concomitant]
     Indication: INJECTION SITE REACTION
  4. BENADRYL [Concomitant]
  5. INTERFERON BETA-1B [Suspect]
     Dosage: 8 MIU, QOD
     Route: 058
  6. HYDROCORTISONE [Concomitant]
     Indication: INJECTION SITE REACTION
  7. INTERFERON BETA-1B [Suspect]
     Indication: MULTIPLE SCLEROSIS
     Dosage: 2 MIU, QOD
     Route: 058
     Dates: start: 20110427
  8. INTERFERON BETA-1B [Suspect]
     Dosage: 8 MIU, QOD
     Route: 058

REACTIONS (6)
  - INJECTION SITE PAIN [None]
  - INJECTION SITE RASH [None]
  - INJECTION SITE ERYTHEMA [None]
  - INJECTION SITE SCAB [None]
  - INJECTION SITE MASS [None]
  - INJECTION SITE HAEMATOMA [None]
